FAERS Safety Report 9670081 (Version 1)
Quarter: 2013Q4

REPORT INFORMATION
  Report Type: Spontaneous
  Country: JP (occurrence: JP)
  Receive Date: 20131105
  Receipt Date: 20131105
  Transmission Date: 20140711
  Serious: Yes (Hospitalization)
  Sender: FDA-Public Use
  Company Number: JP-TAKEDA-2013TUS001684

PATIENT
  Sex: 0

DRUGS (1)
  1. COLCHICINE [Suspect]
     Dosage: 1.5 MG, QD

REACTIONS (2)
  - Viral hepatitis carrier [Unknown]
  - Polyarteritis nodosa [Unknown]
